FAERS Safety Report 9114165 (Version 1)
Quarter: 2013Q1

REPORT INFORMATION
  Report Type: Spontaneous
  Country: US (occurrence: US)
  Receive Date: 20130208
  Receipt Date: 20130208
  Transmission Date: 20140127
  Serious: Yes (Hospitalization, Other)
  Sender: FDA-Public Use
  Company Number: US-009507513-1302USA000873

PATIENT
  Age: 50 Year
  Sex: Male

DRUGS (6)
  1. VIOXX [Suspect]
     Indication: EPICONDYLITIS
     Dosage: 30 UNK, UNK
     Route: 048
     Dates: start: 20001212
  2. VIOXX [Suspect]
     Indication: ARTHRALGIA
     Dosage: UNK
     Dates: end: 20040513
  3. ALBUMIN HUMAN [Concomitant]
  4. SEROQUEL [Concomitant]
  5. VALIUM [Concomitant]
  6. VERAPAMIL [Concomitant]

REACTIONS (10)
  - Cerebrovascular accident [Recovered/Resolved]
  - Carotid artery occlusion [Recovered/Resolved]
  - Convulsion [Unknown]
  - Renal failure [Unknown]
  - Carotid bruit [Unknown]
  - Cholelithiasis [Unknown]
  - Renal impairment [Unknown]
  - Insomnia [Unknown]
  - Nausea [Unknown]
  - Vomiting [Unknown]
